FAERS Safety Report 14489914 (Version 2)
Quarter: 2018Q1

REPORT INFORMATION
  Report Type: Spontaneous
  Country: JP (occurrence: JP)
  Receive Date: 20180206
  Receipt Date: 20180224
  Transmission Date: 20180509
  Serious: No
  Sender: FDA-Public Use
  Company Number: JP-ROCHE-2066704

PATIENT
  Age: 8 Decade
  Sex: Female

DRUGS (1)
  1. TAMIFLU [Suspect]
     Active Substance: OSELTAMIVIR PHOSPHATE
     Indication: INFLUENZA
     Dosage: MOST RECENT DOSE ADMINISTERED ON 23/JAN/2018.
     Route: 048
     Dates: start: 20180119

REACTIONS (1)
  - Pyrexia [Unknown]
